FAERS Safety Report 9360902 (Version 1)
Quarter: 2013Q2

REPORT INFORMATION
  Report Type: Spontaneous
  Country: US (occurrence: None)
  Receive Date: 20130618
  Receipt Date: 20130618
  Transmission Date: 20140414
  Serious: Yes (Other)
  Sender: FDA-Public Use
  Company Number: AUR-APL-2013-04915

PATIENT
  Age: 58 Year
  Sex: Male

DRUGS (1)
  1. ALPRAZOLAM [Suspect]
     Indication: TREMOR

REACTIONS (3)
  - Lethargy [None]
  - Respiratory rate decreased [None]
  - Respiratory depression [None]
